FAERS Safety Report 15244103 (Version 1)
Quarter: 2018Q3

REPORT INFORMATION
  Report Type: Spontaneous
  Country: US (occurrence: US)
  Receive Date: 20180712
  Receipt Date: 20180712
  Transmission Date: 20181010
  Serious: Yes (Hospitalization)
  Sender: FDA-Public Use
  Company Number: None

PATIENT
  Sex: Female

DRUGS (2)
  1. MYCOPHENOLATE TAB [Suspect]
     Active Substance: MYCOPHENOLATE MOFETIL
     Route: 048
     Dates: start: 201403
  2. GENGRAF [Suspect]
     Active Substance: CYCLOSPORINE
     Route: 048
     Dates: start: 201403

REACTIONS (2)
  - Hospitalisation [None]
  - Chest pain [None]
